FAERS Safety Report 15686817 (Version 2)
Quarter: 2019Q1

REPORT INFORMATION
  Report Type: Spontaneous
  Country: US (occurrence: US)
  Receive Date: 20181204
  Receipt Date: 20190225
  Transmission Date: 20190417
  Serious: Yes (Hospitalization, Other)
  Sender: FDA-Public Use
  Company Number: US-009507513-1812USA000546

PATIENT
  Age: 54 Year
  Sex: Male

DRUGS (6)
  1. VEMURAFENIB. [Suspect]
     Active Substance: VEMURAFENIB
     Dosage: 720 UNK
  2. VEMURAFENIB. [Suspect]
     Active Substance: VEMURAFENIB
     Indication: METASTATIC MALIGNANT MELANOMA
     Dosage: 960 MILLIGRAM, BID
  3. COBIMETINIB. [Suspect]
     Active Substance: COBIMETINIB
     Dosage: 40 MILLIGRAM PER DECILITRE
  4. COBIMETINIB. [Suspect]
     Active Substance: COBIMETINIB
     Indication: METASTATIC MALIGNANT MELANOMA
     Dosage: 60 MILLIGRAM, QD
  5. DECITABINE. [Suspect]
     Active Substance: DECITABINE
     Indication: METASTATIC MALIGNANT MELANOMA
     Dosage: 0.1 MILLIGRAM/KILOGRAM, BIW
  6. KEYTRUDA [Suspect]
     Active Substance: PEMBROLIZUMAB
     Indication: METASTATIC MALIGNANT MELANOMA

REACTIONS (2)
  - Toxicity to various agents [Unknown]
  - Cytokine release syndrome [Unknown]
